FAERS Safety Report 14127479 (Version 1)
Quarter: 2017Q4

REPORT INFORMATION
  Report Type: Spontaneous
  Country: CA (occurrence: CA)
  Receive Date: 20171026
  Receipt Date: 20171026
  Transmission Date: 20180321
  Serious: Yes (Other)
  Sender: FDA-Public Use
  Company Number: CA-BAXTER-2017BAX029020

PATIENT
  Age: 34 Year
  Sex: Female
  Weight: 93 kg

DRUGS (25)
  1. FUROSEMIDE. [Concomitant]
     Active Substance: FUROSEMIDE
     Route: 033
     Dates: start: 20170712, end: 20170719
  2. ARIPIPRAZOLE. [Concomitant]
     Active Substance: ARIPIPRAZOLE
     Indication: PRODUCT USED FOR UNKNOWN INDICATION
     Route: 065
     Dates: start: 20170712, end: 20170719
  3. LINACLOTIDE [Concomitant]
     Active Substance: LINACLOTIDE
     Indication: PRODUCT USED FOR UNKNOWN INDICATION
     Route: 065
     Dates: start: 20170712, end: 20170719
  4. METOLAZONE. [Concomitant]
     Active Substance: METOLAZONE
     Indication: PRODUCT USED FOR UNKNOWN INDICATION
     Route: 065
     Dates: start: 20170712, end: 20170719
  5. ROSUVASTATIN. [Concomitant]
     Active Substance: ROSUVASTATIN
     Indication: PRODUCT USED FOR UNKNOWN INDICATION
     Route: 065
     Dates: start: 20170712, end: 20170719
  6. NYSTATIN. [Concomitant]
     Active Substance: NYSTATIN
     Indication: PRODUCT USED FOR UNKNOWN INDICATION
     Route: 048
     Dates: start: 20170707, end: 20170719
  7. DIPHENHYDRAMINE. [Concomitant]
     Active Substance: DIPHENHYDRAMINE
     Indication: PRODUCT USED FOR UNKNOWN INDICATION
     Route: 065
     Dates: start: 20170712, end: 20170719
  8. FOSFOMYCIN [Concomitant]
     Active Substance: FOSFOMYCIN
     Indication: PRODUCT USED FOR UNKNOWN INDICATION
     Dosage: 3 GRAM IN 1 PINT NIGHT/EVENING
     Route: 065
     Dates: start: 20170712, end: 20170719
  9. EXTRANEAL [Suspect]
     Active Substance: CALCIUM CHLORIDE\ICODEXTRIN\MAGNESIUM CHLORIDE\SODIUM CHLORIDE\SODIUM LACTATE
     Indication: PERITONEAL DIALYSIS
     Route: 033
     Dates: start: 20170629, end: 20170717
  10. ACETYLSALICYLIC ACID [Concomitant]
     Active Substance: ASPIRIN
     Indication: PRODUCT USED FOR UNKNOWN INDICATION
     Route: 065
     Dates: start: 20170712, end: 20170719
  11. DOMPERIDONE [Concomitant]
     Active Substance: DOMPERIDONE
     Indication: PRODUCT USED FOR UNKNOWN INDICATION
     Route: 065
     Dates: start: 20170712, end: 20170719
  12. METOPROLOL. [Concomitant]
     Active Substance: METOPROLOL
     Indication: PRODUCT USED FOR UNKNOWN INDICATION
     Route: 065
     Dates: start: 20170712, end: 20170719
  13. VITAMIN B12 [Concomitant]
     Active Substance: CYANOCOBALAMIN
     Indication: PRODUCT USED FOR UNKNOWN INDICATION
     Route: 065
     Dates: start: 20170712, end: 20170719
  14. FUROSEMIDE. [Concomitant]
     Active Substance: FUROSEMIDE
     Indication: PRODUCT USED FOR UNKNOWN INDICATION
     Route: 065
     Dates: start: 20170712, end: 20170719
  15. GABAPENTIN. [Concomitant]
     Active Substance: GABAPENTIN
     Indication: PRODUCT USED FOR UNKNOWN INDICATION
     Route: 065
     Dates: start: 20170712, end: 20170719
  16. LANTUS [Concomitant]
     Active Substance: INSULIN GLARGINE
     Indication: PRODUCT USED FOR UNKNOWN INDICATION
     Route: 065
     Dates: start: 20170712, end: 20170719
  17. HUMALOG [Concomitant]
     Active Substance: INSULIN LISPRO
     Indication: PRODUCT USED FOR UNKNOWN INDICATION
     Dosage: SLIDING SCALE WITH MEALS
     Route: 058
     Dates: start: 20170712, end: 20170719
  18. NYSTATIN. [Suspect]
     Active Substance: NYSTATIN
     Indication: ANTIFUNGAL TREATMENT
     Route: 048
     Dates: start: 20170707, end: 20170719
  19. AMLODIPINE [Concomitant]
     Active Substance: AMLODIPINE BESYLATE
     Indication: PRODUCT USED FOR UNKNOWN INDICATION
     Route: 065
     Dates: start: 20170712, end: 20170719
  20. FUROSEMIDE. [Concomitant]
     Active Substance: FUROSEMIDE
     Dosage: AT LUNCH
     Route: 033
     Dates: start: 20170712, end: 20170719
  21. HYDROXYZINE [Concomitant]
     Active Substance: HYDROXYZINE HYDROCHLORIDE
     Indication: PRODUCT USED FOR UNKNOWN INDICATION
     Route: 065
     Dates: start: 20170712, end: 20170719
  22. NORTRIPTYLINE [Concomitant]
     Active Substance: NORTRIPTYLINE
     Indication: PRODUCT USED FOR UNKNOWN INDICATION
     Route: 065
     Dates: start: 20170712, end: 20170719
  23. VITAMIN D [Concomitant]
     Active Substance: CHOLECALCIFEROL
     Indication: PRODUCT USED FOR UNKNOWN INDICATION
     Route: 065
     Dates: start: 20170712, end: 20170719
  24. CITALOPRAM [Concomitant]
     Active Substance: CITALOPRAM HYDROBROMIDE
     Indication: PRODUCT USED FOR UNKNOWN INDICATION
     Route: 065
     Dates: start: 20170712, end: 20170719
  25. DARBEPOETIN [Concomitant]
     Active Substance: DARBEPOETIN ALFA
     Indication: PRODUCT USED FOR UNKNOWN INDICATION
     Route: 058
     Dates: start: 20170712, end: 20170719

REACTIONS (3)
  - Urticaria [Recovering/Resolving]
  - Urinary tract infection [Unknown]
  - Skin exfoliation [Recovered/Resolved]

NARRATIVE: CASE EVENT DATE: 2017
